FAERS Safety Report 10899791 (Version 2)
Quarter: 2015Q2

REPORT INFORMATION
  Report Type: Spontaneous
  Country: US (occurrence: US)
  Receive Date: 20150310
  Receipt Date: 20150608
  Transmission Date: 20150821
  Serious: No
  Sender: FDA-Public Use
  Company Number: US-GLAXOSMITHKLINE-US2015022493

PATIENT
  Age: 51 Year
  Sex: Female

DRUGS (6)
  1. HYDROXYZINE [Concomitant]
     Active Substance: HYDROXYZINE\HYDROXYZINE HYDROCHLORIDE
  2. SORIATANE [Suspect]
     Active Substance: ACITRETIN
     Indication: PSORIASIS
     Dosage: 25 MG, QD
     Route: 048
     Dates: start: 20141020
  3. FOLIC ACID. [Concomitant]
     Active Substance: FOLIC ACID
  4. LISINOPRIL. [Concomitant]
     Active Substance: LISINOPRIL
  5. SORIATANE [Suspect]
     Active Substance: ACITRETIN
     Indication: DERMATITIS
  6. FLUOXETINE [Concomitant]
     Active Substance: FLUOXETINE\FLUOXETINE HYDROCHLORIDE

REACTIONS (7)
  - Blister rupture [Not Recovered/Not Resolved]
  - Onychoclasis [Unknown]
  - Blister [Not Recovered/Not Resolved]
  - Drug ineffective [Not Recovered/Not Resolved]
  - Dry skin [Not Recovered/Not Resolved]
  - Rash [Unknown]
  - Pruritus [Not Recovered/Not Resolved]

NARRATIVE: CASE EVENT DATE: 201412
